FAERS Safety Report 9550156 (Version 1)
Quarter: 2013Q3

REPORT INFORMATION
  Report Type: Report from Study
  Country: BR (occurrence: BR)
  Receive Date: 20130924
  Receipt Date: 20130924
  Transmission Date: 20140515
  Serious: Yes (Other)
  Sender: FDA-Public Use
  Company Number: PHHY2013BR106126

PATIENT
  Sex: Male

DRUGS (1)
  1. RITALINA [Suspect]
     Indication: DISTURBANCE IN ATTENTION
     Dosage: 10 MG, UNK

REACTIONS (1)
  - Hypertension [Unknown]
